FAERS Safety Report 4361200-2 (Version None)
Quarter: 2004Q2

REPORT INFORMATION
  Report Type: 
  Country: None (occurrence: None)
  Receive Date: 20040518
  Receipt Date: 20040502
  Transmission Date: 20050107
  Serious: Yes (Hospitalization)
  Sender: FDA-Public Use
  Company Number: 163-20785-04050047

PATIENT
  Age: 71 Year
  Sex: Male
  Weight: 92.9874 kg

DRUGS (8)
  1. THALOMID [Suspect]
     Indication: MYELODYSPLASTIC SYNDROME
     Dosage: SEE IMAGE, ORAL
     Route: 048
     Dates: start: 20021120, end: 20040301
  2. THALOMID [Suspect]
     Indication: MYELODYSPLASTIC SYNDROME
     Dosage: SEE IMAGE, ORAL
     Route: 048
     Dates: start: 20040301
  3. FLOMAX [Concomitant]
  4. POTASSIUM (POTASSIUM) [Concomitant]
  5. ALTACE [Concomitant]
  6. DEMADEX [Concomitant]
  7. PREVACID [Concomitant]
  8. VITAMINS (VITAMINS) [Concomitant]

REACTIONS (19)
  - ASTHENIA [None]
  - ATAXIA [None]
  - BALANCE DISORDER [None]
  - COUGH [None]
  - DYSPNOEA [None]
  - EAR INFECTION [None]
  - EAR TUBE INSERTION [None]
  - FEELING DRUNK [None]
  - GAIT DISTURBANCE [None]
  - HAEMOGLOBIN DECREASED [None]
  - HYPOAESTHESIA [None]
  - NEUROPATHY PERIPHERAL [None]
  - OEDEMA PERIPHERAL [None]
  - PNEUMONIA [None]
  - RED BLOOD CELL COUNT DECREASED [None]
  - RED BLOOD CELL COUNT INCREASED [None]
  - SYNCOPE [None]
  - WHITE BLOOD CELL COUNT DECREASED [None]
  - WHITE BLOOD CELL COUNT INCREASED [None]
